FAERS Safety Report 18927231 (Version 1)
Quarter: 2021Q1

REPORT INFORMATION
  Report Type: Spontaneous
  Country: US (occurrence: US)
  Receive Date: 20210222
  Receipt Date: 20210222
  Transmission Date: 20210420
  Serious: Yes (Hospitalization)
  Sender: FDA-Public Use
  Company Number: None

PATIENT
  Age: 80 Year
  Sex: Female
  Weight: 70 kg

DRUGS (10)
  1. GLIPIZIDE 5MG PO BID [Concomitant]
  2. ATORVASTATIN 80MG PO DAILY [Concomitant]
  3. LEVOTHYROXINE 25MCG PO DAILY [Concomitant]
  4. BAMLANIVIMAB. [Suspect]
     Active Substance: BAMLANIVIMAB
     Indication: COVID-19
     Dosage: ?          OTHER FREQUENCY:ONCE;?
     Route: 042
     Dates: start: 20210217, end: 20210217
  5. LOSARTAN25MG PO DAILY [Concomitant]
  6. IMDUR 120MG PO DAILY [Concomitant]
  7. ASPIRIN 81 MG PO DAILY [Concomitant]
  8. SITAGLIPTAN 100MG PO DAILY [Concomitant]
  9. LIDODERM 5% PATCH [Concomitant]
  10. OXYBUTININ 5MG PO DAILY [Concomitant]

REACTIONS (5)
  - Cough [None]
  - Myalgia [None]
  - Nausea [None]
  - Oxygen saturation decreased [None]
  - Headache [None]

NARRATIVE: CASE EVENT DATE: 20210217
